FAERS Safety Report 9501788 (Version 2)
Quarter: 2013Q4

REPORT INFORMATION
  Report Type: Spontaneous
  Country: US (occurrence: US)
  Receive Date: 20130905
  Receipt Date: 20131011
  Transmission Date: 20140711
  Serious: No
  Sender: FDA-Public Use
  Company Number: US-PFIZER INC-2013255995

PATIENT
  Sex: Male

DRUGS (4)
  1. NEURONTIN [Suspect]
     Indication: NERVE INJURY
     Dosage: UNK
     Dates: start: 2008
  2. NEURONTIN [Suspect]
     Indication: SURGERY
  3. NEURONTIN [Suspect]
     Indication: INTERVERTEBRAL DISC PROTRUSION
  4. OXYCODONE HYDROCHLORIDE [Suspect]
     Dosage: UNK
     Dates: start: 2005

REACTIONS (5)
  - Off label use [Unknown]
  - Drug hypersensitivity [Unknown]
  - Urticaria [Recovered/Resolved]
  - Dry mouth [Unknown]
  - Ulcer [Unknown]
